FAERS Safety Report 7220833-6 (Version None)
Quarter: 2011Q1

REPORT INFORMATION
  Report Type: 
  Country: None (occurrence: None)
  Receive Date: 20110112
  Receipt Date: 20110105
  Transmission Date: 20110831
  Serious: Yes (Other)
  Sender: FDA-Public Use
  Company Number: US-BIOGENIDEC-2011BI000584

PATIENT
  Sex: Female

DRUGS (2)
  1. ADVIL [Concomitant]
  2. AVONEX [Suspect]
     Indication: MULTIPLE SCLEROSIS
     Route: 030
     Dates: start: 20000613

REACTIONS (2)
  - LIVER FUNCTION TEST ABNORMAL [None]
  - BREAST CANCER [None]
